FAERS Safety Report 5558934-0 (Version None)
Quarter: 2007Q4

REPORT INFORMATION
  Report Type: 
  Country: None (occurrence: None)
  Receive Date: 20071214
  Receipt Date: 20071112
  Transmission Date: 20080405
  Serious: Yes (Other)
  Sender: FDA-Public Use
  Company Number: CA-PFIZER INC-2007103854

PATIENT
  Sex: Male

DRUGS (2)
  1. LIPITOR [Suspect]
     Route: 048
  2. EZETROL [Suspect]

REACTIONS (6)
  - ADVERSE EVENT [None]
  - ASTHENIA [None]
  - DISCOMFORT [None]
  - INJURY [None]
  - JOINT INJURY [None]
  - MUSCLE INJURY [None]
